FAERS Safety Report 4749319-5 (Version None)
Quarter: 2005Q3

REPORT INFORMATION
  Report Type: 
  Country: None (occurrence: None)
  Receive Date: 20050812
  Receipt Date: 20050601
  Transmission Date: 20060218
  Serious: Yes (Hospitalization)
  Sender: FDA-Public Use
  Company Number: 406619

PATIENT
  Age: 45 Year
  Sex: Female

DRUGS (6)
  1. PEGASYS [Suspect]
     Indication: HEPATITIS C VIRUS
     Dosage: 180 MCG 1 PER WEEK OTHER
     Route: 050
     Dates: start: 20050331
  2. COPEGUS [Suspect]
     Indication: HEPATITIS C VIRUS
     Dosage: 2 DOSE FORM 2 PER DAY ORAL
     Route: 048
     Dates: start: 20050331
  3. ESTROSTEP (ETHINYL ESTRADIOL/NORETHINDRONE ACETATE) [Concomitant]
  4. XANAX [Concomitant]
  5. ZELNORM [Concomitant]
  6. HYOSCYAMINE [Concomitant]

REACTIONS (5)
  - ASTHENIA [None]
  - CHEST PAIN [None]
  - DEHYDRATION [None]
  - DIARRHOEA [None]
  - OEDEMA PERIPHERAL [None]
